FAERS Safety Report 7771346-4 (Version None)
Quarter: 2011Q3

REPORT INFORMATION
  Report Type: 
  Country: None (occurrence: None)
  Receive Date: 20110922
  Receipt Date: 20110907
  Transmission Date: 20111222
  Serious: Yes (Other)
  Sender: FDA-Public Use
  Company Number: US-WATSON-2011-14313

PATIENT
  Sex: Female
  Weight: 47.166 kg

DRUGS (1)
  1. METRONIDAZOLE [Suspect]
     Indication: DIARRHOEA
     Dosage: ONE TABLET TWO TIMES A DAY
     Route: 048
     Dates: start: 20110601, end: 20110601

REACTIONS (10)
  - ABNORMAL FAECES [None]
  - NEUROTOXICITY [None]
  - RETCHING [None]
  - MUSCLE TWITCHING [None]
  - PHOTOPSIA [None]
  - FORMICATION [None]
  - DIZZINESS [None]
  - EAR DISCOMFORT [None]
  - INSOMNIA [None]
  - WEIGHT DECREASED [None]
